FAERS Safety Report 25981607 (Version 1)
Quarter: 2025Q4

REPORT INFORMATION
  Report Type: Report from Study
  Country: US (occurrence: US)
  Receive Date: 20251031
  Receipt Date: 20251031
  Transmission Date: 20260118
  Serious: No
  Sender: JOHNSON AND JOHNSON
  Company Number: US-JNJFOC-20251028696

PATIENT
  Age: 36 Year

DRUGS (1)
  1. TREMFYA [Suspect]
     Active Substance: GUSELKUMAB
     Indication: Crohn^s disease
     Dates: start: 20250606

REACTIONS (4)
  - Hepatic enzyme increased [Unknown]
  - Abdominal discomfort [Unknown]
  - Headache [Recovered/Resolved]
  - Injection site inflammation [Unknown]

NARRATIVE: CASE EVENT DATE: 20251013
